FAERS Safety Report 9603472 (Version 2)
Quarter: 2013Q4

REPORT INFORMATION
  Report Type: Report from Study
  Country: ZA (occurrence: ZA)
  Receive Date: 20131007
  Receipt Date: 20131118
  Transmission Date: 20140711
  Serious: Yes (Hospitalization)
  Sender: FDA-Public Use
  Company Number: ZA-GILEAD-2013-0084523

PATIENT
  Age: 35 Year
  Sex: Female
  Weight: 72 kg

DRUGS (5)
  1. EMTRICITABINE/TENOFOVIR DISOPROXIL FUMARATE [Suspect]
     Indication: HIV INFECTION
     Dosage: 1 DF, QD
     Route: 048
     Dates: start: 20100331
  2. ATAZANAVIR [Concomitant]
     Indication: HIV INFECTION
     Dosage: 300 MG, QD
     Route: 048
     Dates: start: 20100331
  3. RITONAVIR [Concomitant]
     Indication: HIV INFECTION
     Dosage: 100 MG, QD
     Route: 048
     Dates: start: 20100331
  4. FOLIC ACID [Concomitant]
  5. IRON SULFATE [Concomitant]

REACTIONS (2)
  - Cephalo-pelvic disproportion [Recovered/Resolved]
  - Pregnancy [Recovered/Resolved]
